FAERS Safety Report 15227153 (Version 2)
Quarter: 2018Q4

REPORT INFORMATION
  Report Type: Spontaneous
  Country: ZA (occurrence: ZA)
  Receive Date: 20180801
  Receipt Date: 20180810
  Transmission Date: 20190204
  Serious: Yes (Death)
  Sender: FDA-Public Use
  Company Number: ZA-PFIZER INC-2018307049

PATIENT
  Age: 71 Year
  Sex: Male

DRUGS (9)
  1. ECOTRIN [Suspect]
     Active Substance: ASPIRIN
     Dosage: 81 MG, UNK
  2. XANOR [Suspect]
     Active Substance: ALPRAZOLAM
     Indication: SOMNOLENCE
     Dosage: 0.25 MG, UNK
     Dates: start: 20180526
  3. LASIX [Suspect]
     Active Substance: FUROSEMIDE
     Dosage: 80 MG, UNK
  4. PREXUM [Suspect]
     Active Substance: PERINDOPRIL ERBUMINE
     Dosage: 4 MG, UNK
  5. PLENISH-K [Suspect]
     Active Substance: POTASSIUM CHLORIDE
     Dosage: 600 MG, UNK
  6. SPIRACTIN (SPIRONOLACTONE) [Suspect]
     Active Substance: SPIRONOLACTONE
     Dosage: 25 MG, UNK
  7. PANTOCID (PANTOPRAZOLE SODIUM SESQUIHYDRATE) [Suspect]
     Active Substance: PANTOPRAZOLE SODIUM
     Dosage: 20 MG, UNK
  8. ADCO-SIMVASTATIN [Suspect]
     Active Substance: SIMVASTATIN
     Dosage: 40 MG, UNK
  9. CLOPIWIN [Suspect]
     Active Substance: CLOPIDOGREL BISULFATE
     Dosage: 75 MG, UNK

REACTIONS (2)
  - Product use in unapproved indication [Fatal]
  - Heart rate decreased [Fatal]

NARRATIVE: CASE EVENT DATE: 20180526
